FAERS Safety Report 14045933 (Version 3)
Quarter: 2017Q4

REPORT INFORMATION
  Report Type: Spontaneous
  Country: US (occurrence: US)
  Receive Date: 20171005
  Receipt Date: 20171211
  Transmission Date: 20180321
  Serious: No
  Sender: FDA-Public Use
  Company Number: US-PFIZER INC-2017426474

PATIENT
  Age: 47 Year
  Sex: Female

DRUGS (1)
  1. SULFASALAZINE. [Suspect]
     Active Substance: SULFASALAZINE
     Indication: RHEUMATOID ARTHRITIS
     Dosage: UNK
     Dates: start: 20140826, end: 20160326

REACTIONS (3)
  - Drug intolerance [Recovered/Resolved]
  - Treatment failure [Unknown]
  - Abdominal pain upper [Unknown]
